FAERS Safety Report 5730412-5 (Version None)
Quarter: 2008Q2

REPORT INFORMATION
  Report Type: 
  Country: None (occurrence: None)
  Receive Date: 20080505
  Receipt Date: 20080505
  Transmission Date: 20081010
  Serious: Yes (Other)
  Sender: FDA-Public Use
  Company Number: None

PATIENT
  Sex: Female
  Weight: 65.7716 kg

DRUGS (1)
  1. LEVAQUIN [Suspect]
     Indication: UPPER RESPIRATORY TRACT INFECTION
     Dosage: 10 PILLS ONCE A DAY
     Dates: start: 20080422, end: 20080429

REACTIONS (21)
  - ANXIETY [None]
  - ARTHRALGIA [None]
  - BLISTER [None]
  - CHILLS [None]
  - DEPRESSION [None]
  - DIZZINESS [None]
  - FATIGUE [None]
  - HEADACHE [None]
  - INFLUENZA [None]
  - LYMPH NODE PAIN [None]
  - LYMPHADENOPATHY [None]
  - MYALGIA [None]
  - NIGHTMARE [None]
  - PAIN [None]
  - PAIN IN EXTREMITY [None]
  - PRURITUS [None]
  - PYREXIA [None]
  - RASH ERYTHEMATOUS [None]
  - RASH GENERALISED [None]
  - URTICARIA [None]
  - VOMITING [None]
